FAERS Safety Report 15095976 (Version 1)
Quarter: 2018Q3

REPORT INFORMATION
  Report Type: Spontaneous
  Country: PT (occurrence: PT)
  Receive Date: 20180702
  Receipt Date: 20180702
  Transmission Date: 20181010
  Serious: Yes (Other)
  Sender: FDA-Public Use
  Company Number: PT-AUROBINDO-AUR-APL-2018-033307

PATIENT
  Age: 39 Year
  Sex: Male

DRUGS (3)
  1. MEROPENEM. [Concomitant]
     Active Substance: MEROPENEM
     Indication: CHOLANGITIS
     Dosage: UNK
     Route: 065
  2. PROPOFOL. [Concomitant]
     Active Substance: PROPOFOL
     Indication: PRODUCT USED FOR UNKNOWN INDICATION
     Dosage: UNK
     Route: 065
  3. CIPROFLOXACIN. [Suspect]
     Active Substance: CIPROFLOXACIN
     Indication: CHOLANGITIS
     Dosage: UNK
     Route: 065

REACTIONS (10)
  - Hepatic lesion [Unknown]
  - Tenderness [Unknown]
  - Toxicity to various agents [Unknown]
  - Nausea [Unknown]
  - Cholestasis [Unknown]
  - Bile duct stone [Unknown]
  - Pruritus [Unknown]
  - Choluria [Unknown]
  - Hepatic siderosis [Unknown]
  - Jaundice [Unknown]
